FAERS Safety Report 7576499-9 (Version None)
Quarter: 2011Q2

REPORT INFORMATION
  Report Type: 
  Country: None (occurrence: None)
  Receive Date: 20110624
  Receipt Date: 20110624
  Transmission Date: 20111010
  Serious: No
  Sender: FDA-Public Use
  Company Number: None

PATIENT
  Sex: Female

DRUGS (1)
  1. SEREVENT [Suspect]
     Dosage: USE TWICE A DAY
     Dates: start: 20100301

REACTIONS (2)
  - DEVICE MALFUNCTION [None]
  - RESPIRATORY DISORDER [None]
